FAERS Safety Report 9003872 (Version 1)
Quarter: 2013Q1

REPORT INFORMATION
  Report Type: Spontaneous
  Country: US (occurrence: US)
  Receive Date: 20130108
  Receipt Date: 20130108
  Transmission Date: 20140127
  Serious: No
  Sender: FDA-Public Use
  Company Number: US-GLAXOSMITHKLINE-A0999019A

PATIENT
  Sex: Male

DRUGS (1)
  1. LOVAZA [Suspect]
     Dosage: 1CAP PER DAY
     Route: 048
     Dates: start: 20111208

REACTIONS (2)
  - Drug administration error [Unknown]
  - Treatment noncompliance [Unknown]
